FAERS Safety Report 7131995-3 (Version None)
Quarter: 2010Q4

REPORT INFORMATION
  Report Type: 
  Country: None (occurrence: None)
  Receive Date: 20101124
  Receipt Date: 20101124
  Transmission Date: 20110411
  Serious: No
  Sender: FDA-Public Use
  Company Number: None

PATIENT
  Sex: Female
  Weight: 54.4316 kg

DRUGS (2)
  1. BONIVA [Suspect]
     Indication: OSTEOPOROSIS
     Dosage: 150 MG 1X MONTH
     Dates: start: 20100807
  2. BONIVA [Suspect]
     Indication: OSTEOPOROSIS
     Dosage: 150 MG 1X MONTH
     Dates: start: 20100904

REACTIONS (7)
  - ABDOMINAL PAIN UPPER [None]
  - ASTHENIA [None]
  - DEPRESSION [None]
  - DIZZINESS [None]
  - HEADACHE [None]
  - PRESYNCOPE [None]
  - PRODUCT QUALITY ISSUE [None]
